FAERS Safety Report 8308210-8 (Version None)
Quarter: 2012Q2

REPORT INFORMATION
  Report Type: 
  Country: None (occurrence: None)
  Receive Date: 20120424
  Receipt Date: 20120416
  Transmission Date: 20120825
  Serious: Yes (Life-Threatening)
  Sender: FDA-Public Use
  Company Number: JP-ROCHE-1051836

PATIENT
  Sex: Male

DRUGS (12)
  1. METHOTREXATE PRESERVATIVE FREE [Suspect]
     Indication: RHEUMATOID ARTHRITIS
     Route: 048
     Dates: end: 20090331
  2. PREDNISOLONE [Suspect]
     Route: 048
     Dates: start: 20090304, end: 20090331
  3. PREDNISOLONE [Suspect]
     Route: 048
     Dates: start: 20090401, end: 20090426
  4. ACTEMRA [Suspect]
     Indication: RHEUMATOID ARTHRITIS
     Route: 041
     Dates: start: 20090107, end: 20091207
  5. PREDNISOLONE [Suspect]
     Dosage: DOSAGE IS UNCERTAIN.
     Route: 048
     Dates: end: 20090711
  6. ACTEMRA [Suspect]
     Route: 041
     Dates: start: 20100104, end: 20111102
  7. PREDNISOLONE [Suspect]
     Route: 048
     Dates: start: 20090122, end: 20090223
  8. PREDNISOLONE [Suspect]
     Route: 048
     Dates: start: 20090204, end: 20090303
  9. PREDNISOLONE [Suspect]
     Route: 048
     Dates: start: 20090525, end: 20090621
  10. PREDNISOLONE [Suspect]
     Indication: RHEUMATOID ARTHRITIS
     Route: 042
     Dates: start: 20090204, end: 20090303
  11. PREDNISOLONE [Suspect]
     Indication: RHEUMATOID ARTHRITIS
     Route: 048
     Dates: end: 20090121
  12. PREDNISOLONE [Suspect]
     Route: 048
     Dates: start: 20090427, end: 20090524

REACTIONS (1)
  - PROSTATE CANCER [None]
